FAERS Safety Report 8775349 (Version 1)
Quarter: 2012Q4

REPORT INFORMATION
  Report Type: 
  Country: DE (occurrence: DE)
  Receive Date: 20120910
  Receipt Date: 20120910
  Transmission Date: 20130627
  Serious: Yes (Hospitalization)
  Sender: FDA-Public Use
  Company Number: DE-SANOFI-AVENTIS-2012SA061716

PATIENT
  Age: 34 Year
  Sex: Female

DRUGS (2)
  1. CYCLOPHOSPHAMIDE [Suspect]
     Indication: INVASIVE DUCTAL BREAST CANCER
     Dosage: 4 cycles administered, with 3 cycles in pregnancy
     Route: 065
  2. DOCETAXEL [Suspect]
     Indication: INVASIVE DUCTAL BREAST CANCER
     Dosage: 2 cycles administered
     Route: 065

REACTIONS (12)
  - Pre-eclampsia [Recovered/Resolved]
  - Exposure during pregnancy [Unknown]
  - HELLP syndrome [Recovering/Resolving]
  - Haemolysis [Unknown]
  - Aspartate aminotransferase increased [Unknown]
  - Alanine aminotransferase increased [Unknown]
  - Platelet count decreased [Unknown]
  - Haptoglobin decreased [Unknown]
  - Oligohydramnios [Recovering/Resolving]
  - Placental insufficiency [Recovering/Resolving]
  - Foetal growth restriction [Recovered/Resolved]
  - Proteinuria [Unknown]
